FAERS Safety Report 11168372 (Version 1)
Quarter: 2015Q2

REPORT INFORMATION
  Report Type: Spontaneous
  Country: US (occurrence: None)
  Receive Date: 20150604
  Receipt Date: 20150604
  Transmission Date: 20150821
  Serious: Yes (Life-Threatening, Hospitalization)
  Sender: FDA-Public Use
  Company Number: None

PATIENT
  Age: 68 Year
  Sex: Male
  Weight: 81.65 kg

DRUGS (2)
  1. MULTI VITAMIN [Concomitant]
     Active Substance: VITAMINS
  2. CIALIS [Suspect]
     Active Substance: TADALAFIL
     Indication: ERECTILE DYSFUNCTION
     Dosage: 1 PILL
     Route: 048
     Dates: start: 20150101, end: 20150531

REACTIONS (4)
  - Sepsis [None]
  - Myocardial necrosis marker increased [None]
  - Chest pain [None]
  - Haemoglobin decreased [None]

NARRATIVE: CASE EVENT DATE: 20150531
